FAERS Safety Report 10193257 (Version 1)
Quarter: 2014Q2

REPORT INFORMATION
  Report Type: Spontaneous
  Country: US (occurrence: US)
  Receive Date: 20140524
  Receipt Date: 20140524
  Transmission Date: 20141212
  Serious: No
  Sender: FDA-Public Use
  Company Number: US-SA-2013SA111081

PATIENT
  Age: 63 Year
  Sex: Female

DRUGS (5)
  1. SOLOSTAR [Suspect]
     Indication: TYPE 2 DIABETES MELLITUS
  2. LANTUS SOLOSTAR [Suspect]
     Indication: TYPE 2 DIABETES MELLITUS
     Dosage: TAKEN FROM: 6 YEARS DOSE:80 UNIT(S)
     Route: 058
  3. JANUVIA [Concomitant]
  4. GLIPIZIDE [Concomitant]
  5. CRESTOR [Concomitant]

REACTIONS (5)
  - Skin discolouration [Unknown]
  - Injection site bruising [Unknown]
  - Injection site nodule [Unknown]
  - Injection site pain [Unknown]
  - Underdose [Unknown]
